FAERS Safety Report 8786862 (Version 1)
Quarter: 2012Q4

REPORT INFORMATION
  Report Type: 
  Country: NL (occurrence: NL)
  Receive Date: 20120914
  Receipt Date: 20120914
  Transmission Date: 20130627
  Serious: Yes (Other)
  Sender: FDA-Public Use
  Company Number: NL-BRISTOL-MYERS SQUIBB COMPANY-16930539

PATIENT
  Age: 76 Year
  Sex: Male

DRUGS (1)
  1. ORENCIA FOR INJ 250 MG/VIAL [Suspect]
     Indication: RHEUMATOID ARTHRITIS
     Dosage: abatacept 750mg in 130ml NaCl 0,9%. 4th inf on 4Sep12 70ml of inf subcutaneous
     Route: 058

REACTIONS (1)
  - Extravasation [Unknown]
